FAERS Safety Report 4716656-X (Version None)
Quarter: 2005Q3

REPORT INFORMATION
  Report Type: 
  Country: None (occurrence: None)
  Receive Date: 20050714
  Receipt Date: 20050708
  Transmission Date: 20060218
  Serious: Yes (Hospitalization)
  Sender: FDA-Public Use
  Company Number: LTI2005A00155

PATIENT
  Age: 60 Year
  Sex: Female

DRUGS (1)
  1. OGAST             (LANSOPRAZOLE) [Suspect]
     Indication: GASTROOESOPHAGEAL REFLUX DISEASE
     Dosage: 2 DF (2 IN 1 D) ORAL
     Route: 048
     Dates: end: 20050608

REACTIONS (3)
  - ECZEMA [None]
  - OBLITERATIVE BRONCHIOLITIS [None]
  - PNEUMONITIS [None]
